FAERS Safety Report 6784589-3 (Version None)
Quarter: 2010Q2

REPORT INFORMATION
  Report Type: 
  Country: None (occurrence: None)
  Receive Date: 20100622
  Receipt Date: 20100614
  Transmission Date: 20101027
  Serious: Yes (Hospitalization)
  Sender: FDA-Public Use
  Company Number: A0861466A

PATIENT
  Sex: Female

DRUGS (7)
  1. ADVAIR DISKUS 100/50 [Suspect]
     Indication: CHRONIC OBSTRUCTIVE PULMONARY DISEASE
     Dosage: 1PUFF TWICE PER DAY
     Route: 055
     Dates: start: 20070901
  2. LANOXIN [Suspect]
     Route: 065
  3. AVAILNEX [Suspect]
     Indication: COUGH
  4. BLOOD PRESSURE MEDICATION [Suspect]
     Indication: BLOOD PRESSURE
  5. DIGOXIN [Concomitant]
  6. PLAVIX [Concomitant]
  7. CRESTOR [Concomitant]

REACTIONS (7)
  - ABDOMINAL DISCOMFORT [None]
  - BLOOD PRESSURE DECREASED [None]
  - BRONCHITIS [None]
  - COUGH [None]
  - DYSPNOEA [None]
  - LOSS OF CONSCIOUSNESS [None]
  - THROAT TIGHTNESS [None]
